FAERS Safety Report 17701178 (Version 1)
Quarter: 2020Q2

REPORT INFORMATION
  Report Type: Spontaneous
  Country: DE (occurrence: DE)
  Receive Date: 20200424
  Receipt Date: 20200424
  Transmission Date: 20200714
  Serious: Yes (Hospitalization, Other)
  Sender: FDA-Public Use
  Company Number: DE-ASTRAZENECA-2020SE53312

PATIENT
  Sex: Female

DRUGS (2)
  1. SGLT2 INHIBITOR [DAPAGLIFLOZIN] [Suspect]
     Active Substance: DAPAGLIFLOZIN
     Route: 048
  2. METFORMIN [Concomitant]
     Active Substance: METFORMIN HYDROCHLORIDE

REACTIONS (2)
  - Lactic acidosis [Recovered/Resolved]
  - Infection [Recovered/Resolved]
